FAERS Safety Report 10192996 (Version 3)
Quarter: 2014Q3

REPORT INFORMATION
  Report Type: Spontaneous
  Country: CA (occurrence: CA)
  Receive Date: 20140524
  Receipt Date: 20140704
  Transmission Date: 20150326
  Serious: Yes (Other)
  Sender: FDA-Public Use
  Company Number: PHHY2014CA036617

PATIENT
  Age: 84 Year
  Sex: Female

DRUGS (2)
  1. EXELON PATCH [Suspect]
     Active Substance: RIVASTIGMINE
     Indication: DEMENTIA ALZHEIMER^S TYPE
     Dosage: 4.6 MG, QD (5MG/24HS)
     Route: 062
     Dates: start: 20131219, end: 20140112
  2. EXELON PATCH [Suspect]
     Active Substance: RIVASTIGMINE
     Dosage: 9.5 MG, QD (10MG/24HS)
     Route: 062
     Dates: start: 20140113, end: 20140512

REACTIONS (9)
  - Rash [Recovered/Resolved]
  - Anaphylactoid reaction [Recovered/Resolved]
  - Type I hypersensitivity [Recovered/Resolved]
  - Urticaria [Recovered/Resolved]
  - Flushing [Recovered/Resolved]
  - Oedema [Recovered/Resolved]
  - Swelling [Recovered/Resolved]
  - Application site erythema [Recovered/Resolved]
  - Application site pruritus [Recovered/Resolved]

NARRATIVE: CASE EVENT DATE: 20140311
